FAERS Safety Report 7193974-X (Version None)
Quarter: 2010Q4

REPORT INFORMATION
  Report Type: 
  Country: None (occurrence: None)
  Receive Date: 20101223
  Receipt Date: 20100914
  Transmission Date: 20110411
  Serious: No
  Sender: FDA-Public Use
  Company Number: US-AMGEN-KDL438190

PATIENT

DRUGS (7)
  1. ENBREL [Suspect]
     Indication: PRODUCT USED FOR UNKNOWN INDICATION
     Dosage: 50 MG, QWK
     Route: 058
  2. ATORVASTATIN CALCIUM [Suspect]
     Dosage: 10 MG, UNK
  3. VALSARTAN [Suspect]
  4. ALISKIREN [Suspect]
  5. OMEPRAZOLE [Suspect]
     Dosage: 20 MG, UNK
  6. HYDROCHLOROTHIAZIDE [Suspect]
     Dosage: 12.5 MG, UNK
  7. ACETAMINOPHEN [Suspect]
     Dosage: 325 MG, UNK

REACTIONS (3)
  - INJECTION SITE PRURITUS [None]
  - INJECTION SITE REACTION [None]
  - INJECTION SITE SWELLING [None]
